FAERS Safety Report 8799917 (Version 2)
Quarter: 2012Q4

REPORT INFORMATION
  Report Type: Spontaneous
  Country: BR (occurrence: None)
  Receive Date: 20120917
  Receipt Date: 20120921
  Transmission Date: 20130627
  Serious: Yes (Death, Hospitalization, Other)
  Sender: FDA-Public Use
  Company Number: BR-1194200

PATIENT
  Age: 63 Year
  Sex: Male
  Weight: 90 kg

DRUGS (1)
  1. TRAVATAN [Suspect]
     Indication: GLAUCOMA
     Route: 047
     Dates: start: 2011, end: 20120128

REACTIONS (4)
  - Cardiac arrest [None]
  - Renal failure [None]
  - Sepsis [None]
  - Hypertension [None]
